FAERS Safety Report 11581332 (Version 1)
Quarter: 2015Q4

REPORT INFORMATION
  Report Type: Spontaneous
  Country: US (occurrence: US)
  Receive Date: 20151001
  Receipt Date: 20151001
  Transmission Date: 20160304
  Serious: Yes (Hospitalization)
  Sender: FDA-Public Use
  Company Number: US-ROCHE-646094

PATIENT
  Age: 37 Year
  Sex: Female
  Weight: 74.8 kg

DRUGS (5)
  1. RIBAVIRIN. [Suspect]
     Active Substance: RIBAVIRIN
     Dosage: REDUCED TO HALF
     Route: 048
  2. RIBASPHERE RIBAPAK [Suspect]
     Active Substance: RIBAVIRIN
     Indication: HEPATITIS C
     Route: 065
  3. PEGASYS [Suspect]
     Active Substance: PEGINTERFERON ALFA-2A
     Indication: HEPATITIS C
     Dosage: FORM:PRE FILLED SYRINGE.
     Route: 058
  4. PEGASYS [Suspect]
     Active Substance: PEGINTERFERON ALFA-2A
     Route: 058
  5. RIBAVIRIN. [Suspect]
     Active Substance: RIBAVIRIN
     Indication: HEPATITIS C
     Dosage: START DATE: JULY 2009
     Route: 048

REACTIONS (10)
  - Urinary tract infection [Not Recovered/Not Resolved]
  - Renal disorder [Unknown]
  - Sensory disturbance [Not Recovered/Not Resolved]
  - Red blood cell abnormality [Unknown]
  - Hypoaesthesia [Not Recovered/Not Resolved]
  - Hallucination [Unknown]
  - Amnesia [Unknown]
  - White blood cell disorder [Unknown]
  - Hallucination, auditory [Unknown]
  - Confusional state [Unknown]

NARRATIVE: CASE EVENT DATE: 20090701
